FAERS Safety Report 9680239 (Version 1)
Quarter: 2013Q4

REPORT INFORMATION
  Report Type: Spontaneous
  Country: US (occurrence: US)
  Receive Date: 20131111
  Receipt Date: 20131111
  Transmission Date: 20140711
  Serious: No
  Sender: FDA-Public Use
  Company Number: US-BIOGENIDEC-2013BI101113

PATIENT
  Age: 52 Year
  Sex: Male

DRUGS (6)
  1. AVONEX [Suspect]
     Indication: MULTIPLE SCLEROSIS
     Route: 030
     Dates: start: 20130301
  2. GABAPENTIN [Concomitant]
  3. IBUPROFEN [Concomitant]
  4. PROZAC [Concomitant]
  5. REMERON [Concomitant]
  6. AMANTADINE HCL [Concomitant]

REACTIONS (1)
  - Local swelling [Unknown]
